FAERS Safety Report 6016676-1 (Version None)
Quarter: 2008Q4

REPORT INFORMATION
  Report Type: 
  Country: None (occurrence: None)
  Receive Date: 20081222
  Receipt Date: 20081219
  Transmission Date: 20090506
  Serious: Yes (Hospitalization)
  Sender: FDA-Public Use
  Company Number: US-ELI_LILLY_AND_COMPANY-US200811000675

PATIENT
  Sex: Female

DRUGS (7)
  1. SOMATROPIN [Suspect]
     Indication: HYPOPITUITARISM
     Dosage: 0.43 IU, DAILY (1/D)
  2. PREMARIN [Concomitant]
     Indication: MENOPAUSE
  3. LEVOXYL [Concomitant]
     Indication: HYPOTHYROIDISM
  4. LESCOL [Concomitant]
     Indication: HYPERLIPIDAEMIA
  5. ALPRAZOLAM [Concomitant]
     Indication: ANXIETY
  6. LEXAPRO [Concomitant]
     Indication: DEPRESSION
  7. CARTIA XT [Concomitant]

REACTIONS (3)
  - CHEST PAIN [None]
  - DIZZINESS [None]
  - NAUSEA [None]
